FAERS Safety Report 7795663-7 (Version None)
Quarter: 2011Q4

REPORT INFORMATION
  Report Type: 
  Country: None (occurrence: None)
  Receive Date: 20111004
  Receipt Date: 20110928
  Transmission Date: 20120403
  Serious: Yes (Other)
  Sender: FDA-Public Use
  Company Number: FR-GLAXOSMITHKLINE-B0751297A

PATIENT
  Age: 41 Year
  Sex: Male

DRUGS (4)
  1. ZYPREXA [Concomitant]
     Route: 065
  2. ZONEGRAN [Concomitant]
     Route: 065
  3. LAMICTAL [Suspect]
     Indication: EPILEPSY
     Route: 048
     Dates: start: 20080101
  4. DEPAKENE [Concomitant]
     Route: 065

REACTIONS (3)
  - VISUAL ACUITY REDUCED [None]
  - DIPLOPIA [None]
  - VISION BLURRED [None]
